FAERS Safety Report 7501717-2 (Version None)
Quarter: 2011Q2

REPORT INFORMATION
  Report Type: 
  Country: None (occurrence: None)
  Receive Date: 20110525
  Receipt Date: 20110516
  Transmission Date: 20111010
  Serious: Yes (Hospitalization)
  Sender: FDA-Public Use
  Company Number: US-BIOGENIDEC-2011BI018247

PATIENT
  Age: 54 Year
  Sex: Female

DRUGS (2)
  1. BACLOFEN [Concomitant]
  2. TYSABRI [Suspect]
     Indication: MULTIPLE SCLEROSIS
     Route: 042
     Dates: start: 20070828

REACTIONS (2)
  - ACCIDENTAL OVERDOSE [None]
  - SUICIDE ATTEMPT [None]
